FAERS Safety Report 13966395 (Version 1)
Quarter: 2017Q3

REPORT INFORMATION
  Report Type: Spontaneous
  Country: FR (occurrence: FR)
  Receive Date: 20170913
  Receipt Date: 20170913
  Transmission Date: 20171128
  Serious: Yes (Death, Other)
  Sender: FDA-Public Use
  Company Number: FR-009507513-1709FRA005204

PATIENT
  Age: 61 Year
  Sex: Male

DRUGS (2)
  1. NOXAFIL [Suspect]
     Active Substance: POSACONAZOLE
     Indication: OSTEITIS
     Dosage: UNK
     Route: 041
     Dates: start: 20170710, end: 20170816
  2. AXEPIM [Suspect]
     Active Substance: CEFEPIME HYDROCHLORIDE
     Indication: LUNG DISORDER
     Dosage: UNK
     Route: 041
     Dates: start: 20170802, end: 20170814

REACTIONS (3)
  - Renal failure [Fatal]
  - Hypernatraemia [Fatal]
  - Metabolic encephalopathy [Fatal]

NARRATIVE: CASE EVENT DATE: 20170805
